FAERS Safety Report 25614766 (Version 1)
Quarter: 2025Q3

REPORT INFORMATION
  Report Type: Spontaneous
  Country: EU (occurrence: EU)
  Receive Date: 20250729
  Receipt Date: 20250729
  Transmission Date: 20251021
  Serious: Yes (Other)
  Sender: CELLTRION
  Company Number: EU-ABBVIE-6224638

PATIENT

DRUGS (2)
  1. ADALIMUMAB [Suspect]
     Active Substance: ADALIMUMAB
     Indication: Rheumatoid arthritis
     Dosage: UNK, 1/WEEK, BATCH/LOT NUMBER: NOT AVAILABLE
     Route: 058
     Dates: start: 202404, end: 202406
  2. PREDNISONE [Concomitant]
     Active Substance: PREDNISONE
     Indication: Product used for unknown indication
     Dates: start: 202311

REACTIONS (3)
  - Cholestasis [Unknown]
  - Drug tolerance decreased [Unknown]
  - Liver function test increased [Unknown]

NARRATIVE: CASE EVENT DATE: 20240601
